FAERS Safety Report 6273892-1 (Version None)
Quarter: 2009Q3

REPORT INFORMATION
  Report Type: 
  Country: None (occurrence: None)
  Receive Date: 20090720
  Receipt Date: 20090629
  Transmission Date: 20100115
  Serious: Yes (Life-Threatening, Hospitalization)
  Sender: FDA-Public Use
  Company Number: US-BAYER-200924815NA

PATIENT
  Age: 3 Week
  Sex: Male

DRUGS (1)
  1. CAMPATH [Suspect]
     Indication: RELAPSING-REMITTING MULTIPLE SCLEROSIS
     Dosage: TOTAL DAILY DOSE: 12 MG
     Route: 042
     Dates: start: 20080512, end: 20080516

REACTIONS (1)
  - THYROTOXIC CRISIS [None]
